FAERS Safety Report 12052365 (Version 1)
Quarter: 2016Q1

REPORT INFORMATION
  Report Type: Spontaneous
  Country: US (occurrence: None)
  Receive Date: 20160208
  Receipt Date: 20160208
  Transmission Date: 20160526
  Serious: Yes (Other)
  Sender: FDA-Public Use
  Company Number: None

PATIENT
  Age: 61 Year
  Sex: Male
  Weight: 110 kg

DRUGS (3)
  1. FLUTICASONE 50 MCG/ACT [Suspect]
     Active Substance: FLUTICASONE\FLUTICASONE PROPIONATE
     Indication: CHRONIC SINUSITIS
     Dosage: 2 SPRAY EACH NOSTRIL, DAILY, INTRANASAL
     Route: 045
     Dates: start: 201504
  2. FLUTICASONE 50 MCG/ACT [Suspect]
     Active Substance: FLUTICASONE\FLUTICASONE PROPIONATE
     Indication: RHINITIS ALLERGIC
     Dosage: 2 SPRAY EACH NOSTRIL, DAILY, INTRANASAL
     Route: 045
     Dates: start: 201504
  3. FLUNISOLIDE 25 MCG/ACT [Suspect]
     Active Substance: FLUNISOLIDE
     Dosage: 2 SPRAY EACH NOSTRIL, DAILY, INTRANASAL
     Route: 045
     Dates: start: 201601

REACTIONS (2)
  - Product substitution issue [None]
  - Drug ineffective [None]
